FAERS Safety Report 4607769-1 (Version None)
Quarter: 2005Q1

REPORT INFORMATION
  Report Type: 
  Country: None (occurrence: None)
  Receive Date: 20050314
  Receipt Date: 20050303
  Transmission Date: 20050727
  Serious: Yes (Hospitalization)
  Sender: FDA-Public Use
  Company Number: FR-GLAXOSMITHKLINE-B0373684A

PATIENT
  Age: 37 Year
  Sex: Female

DRUGS (5)
  1. COMBIVIR [Suspect]
     Indication: HIV INFECTION
     Route: 048
     Dates: start: 20030922
  2. EPIVIR [Suspect]
     Indication: HIV INFECTION
     Route: 048
  3. SAQUINAVIR [Suspect]
     Indication: HIV INFECTION
     Route: 048
  4. NORVIR [Suspect]
     Indication: HIV INFECTION
     Route: 048
  5. ZERIT [Suspect]
     Indication: HIV INFECTION
     Route: 048

REACTIONS (2)
  - LIPODYSTROPHY ACQUIRED [None]
  - MASTITIS [None]
